FAERS Safety Report 4294170-6 (Version None)
Quarter: 2004Q1

REPORT INFORMATION
  Report Type: 
  Country: None (occurrence: None)
  Receive Date: 20040213
  Receipt Date: 20040205
  Transmission Date: 20041129
  Serious: Yes (Other)
  Sender: FDA-Public Use
  Company Number: PHEH2004US01627

PATIENT
  Age: 10 Year
  Sex: Male

DRUGS (2)
  1. RITALIN [Suspect]
     Indication: ATTENTION DEFICIT/HYPERACTIVITY DISORDER
     Dosage: 20 MG, QD
     Dates: start: 20040204
  2. ALBUTEROL [Concomitant]
     Indication: ASTHMA
     Dosage: UNK, PRN

REACTIONS (2)
  - ASTHMA [None]
  - TACHYCARDIA [None]
